FAERS Safety Report 16575087 (Version 1)
Quarter: 2019Q3

REPORT INFORMATION
  Report Type: Spontaneous
  Country: TR (occurrence: TR)
  Receive Date: 20190715
  Receipt Date: 20190715
  Transmission Date: 20191004
  Serious: Yes (Hospitalization)
  Sender: FDA-Public Use
  Company Number: PHHY2019TR160191

PATIENT
  Age: 85 Year
  Sex: Female

DRUGS (1)
  1. DICLOFENAC [Suspect]
     Active Substance: DICLOFENAC
     Indication: ARTHRALGIA
     Dosage: UNK, OCCASIONALLY
     Route: 065

REACTIONS (9)
  - Gastrointestinal haemorrhage [Recovered/Resolved]
  - Diarrhoea haemorrhagic [Recovered/Resolved]
  - Petechiae [Recovered/Resolved]
  - Nodule [Recovered/Resolved]
  - Fatigue [Recovered/Resolved]
  - Gastrointestinal tract mucosal discolouration [Recovered/Resolved]
  - Mucosal disorder [Recovered/Resolved]
  - Colitis ischaemic [Recovered/Resolved]
  - Ulcer [Recovered/Resolved]
